FAERS Safety Report 7904870-1 (Version None)
Quarter: 2011Q4

REPORT INFORMATION
  Report Type: 
  Country: None (occurrence: None)
  Receive Date: 20111109
  Receipt Date: 20111031
  Transmission Date: 20120403
  Serious: Yes (Other)
  Sender: FDA-Public Use
  Company Number: US-ASTRAZENECA-2011SE65995

PATIENT
  Age: 88 Year
  Sex: Female

DRUGS (3)
  1. NEXIUM [Suspect]
     Indication: ATRIAL FIBRILLATION
     Route: 048
  2. NEXIUM [Suspect]
     Indication: CARDIAC DISORDER
     Route: 048
  3. PREDNISONE [Concomitant]

REACTIONS (5)
  - PELVIC FRACTURE [None]
  - HIATUS HERNIA [None]
  - DEVICE BREAKAGE [None]
  - OFF LABEL USE [None]
  - HIP FRACTURE [None]
